FAERS Safety Report 4644417-9 (Version None)
Quarter: 2005Q2

REPORT INFORMATION
  Report Type: 
  Country: None (occurrence: None)
  Receive Date: 20050331
  Receipt Date: 20041209
  Transmission Date: 20051028
  Serious: No
  Sender: FDA-Public Use
  Company Number: 04P-163-0282730-00

PATIENT
  Age: 55 Year
  Sex: Male
  Weight: 82.1011 kg

DRUGS (5)
  1. HUMIRA [Suspect]
     Indication: RHEUMATOID ARTHRITIS
     Dosage: 40 MG, 1 IN 2 WK, SUBCUTANEOUS
     Route: 058
     Dates: start: 20030101
  2. PREDNISONE [Concomitant]
  3. LEFLUNOMIDE [Concomitant]
  4. LISINOPRIL [Concomitant]
  5. VITAMINS [Concomitant]

REACTIONS (3)
  - HEPATIC ENZYME INCREASED [None]
  - PRURITUS [None]
  - RHEUMATOID ARTHRITIS [None]
